FAERS Safety Report 10014697 (Version 1)
Quarter: 2014Q1

REPORT INFORMATION
  Report Type: Spontaneous
  Country: US (occurrence: US)
  Receive Date: 20140317
  Receipt Date: 20140317
  Transmission Date: 20141002
  Serious: Yes (Hospitalization, Other)
  Sender: FDA-Public Use
  Company Number: US-BAYER-2014-037211

PATIENT
  Age: 36 Year
  Sex: Female
  Weight: 82.09 kg

DRUGS (12)
  1. YAZ [Suspect]
  2. ALLEGRA [Concomitant]
     Dosage: 180 MG, UNK
     Route: 048
     Dates: start: 20100622
  3. FLUOXETINE [Concomitant]
     Dosage: 20 MG, UNK
     Route: 048
     Dates: start: 20100622
  4. LORAZEPAM [Concomitant]
     Dosage: 1 MG, TID
     Route: 048
     Dates: start: 20100622
  5. PREDNISONE [Concomitant]
     Dosage: 20 MG, UNK
     Route: 048
     Dates: start: 20100903
  6. ASPIRIN [Concomitant]
     Dosage: 81 MG, UNK
     Route: 048
     Dates: start: 20100915
  7. BUPROPION [Concomitant]
     Dosage: 75 MG, UNK
     Route: 048
     Dates: start: 20100915
  8. CYCLOBENZAPRINE [Concomitant]
     Indication: BACK PAIN
     Dosage: 10 MG, UNK
     Route: 048
     Dates: start: 20100915
  9. RITALIN [Concomitant]
     Dosage: UNK
     Route: 048
     Dates: start: 20100915
  10. MULTIVITAMIN [Concomitant]
     Dosage: UNK
     Route: 048
     Dates: start: 20100915
  11. LACTOBACILLUS ACIDOPHILUS [Concomitant]
     Dosage: UNK
     Route: 048
     Dates: start: 20100915
  12. OXYCODONE [Concomitant]
     Dosage: 10 MG, UNK
     Route: 048
     Dates: start: 20100915

REACTIONS (2)
  - Pulmonary embolism [None]
  - Thrombophlebitis superficial [None]
